FAERS Safety Report 9969860 (Version 1)
Quarter: 2014Q1

REPORT INFORMATION
  Report Type: Spontaneous
  Country: US (occurrence: None)
  Receive Date: 20140131
  Receipt Date: 20140131
  Transmission Date: 20141002
  Serious: Yes (Other)
  Sender: FDA-Public Use
  Company Number: 079136

PATIENT
  Sex: Female

DRUGS (7)
  1. KEPPRA [Suspect]
     Indication: CONVULSION
     Dosage: UNKNOWN DOSE
     Dates: start: 201204
  2. DEPAKOTE ER [Concomitant]
  3. LISINOPRIL [Concomitant]
  4. INSULIN HUMULIN ULTRALENTE [Concomitant]
  5. INSULIN HUMUKIN-N [Concomitant]
  6. ESTROGEN NOS [Concomitant]
  7. FEXOFENADINE [Concomitant]

REACTIONS (1)
  - Convulsion [None]
